FAERS Safety Report 5483073-7 (Version None)
Quarter: 2007Q4

REPORT INFORMATION
  Report Type: 
  Country: None (occurrence: None)
  Receive Date: 20071009
  Receipt Date: 20070920
  Transmission Date: 20080405
  Serious: Yes (Death, Hospitalization)
  Sender: FDA-Public Use
  Company Number: 8027096

PATIENT
  Age: 75 Year
  Sex: Male

DRUGS (8)
  1. KEPPRA [Suspect]
     Dosage: 500 MG ONCE PO
     Route: 048
     Dates: start: 20070729, end: 20070729
  2. RIVOTRIL. [Suspect]
     Dosage: 0.5 MG ONCE PO
     Route: 048
     Dates: start: 20070729, end: 20070729
  3. HALOPERIDOL [Concomitant]
  4. FUROSEMIDE [Concomitant]
  5. DILTIAZEM [Concomitant]
  6. PARACETAMOL [Concomitant]
  7. ESOMEPRAZOLE [Concomitant]
  8. LAXOBERON [Concomitant]

REACTIONS (10)
  - ASPIRATION BRONCHIAL [None]
  - COMA [None]
  - DYSARTHRIA [None]
  - HYPOVENTILATION [None]
  - LIVEDO RETICULARIS [None]
  - OXYGEN SATURATION DECREASED [None]
  - PYREXIA [None]
  - RESPIRATORY ACIDOSIS [None]
  - SEPSIS [None]
  - WRONG DRUG ADMINISTERED [None]
